FAERS Safety Report 6248203-8 (Version None)
Quarter: 2009Q2

REPORT INFORMATION
  Report Type: 
  Country: None (occurrence: None)
  Receive Date: 20090624
  Receipt Date: 20090624
  Transmission Date: 20091009
  Serious: Yes (Death, Hospitalization, Other)
  Sender: FDA-Public Use
  Company Number: None

PATIENT
  Sex: Male
  Weight: 72.5755 kg

DRUGS (2)
  1. PROZAC [Suspect]
     Indication: DEPRESSION
     Dosage: 60 MGS. (3/95-10/95) ONCE DAILY ORAL 30 MGS. (1/95-3/95) ONCE DAILY ORAL
     Route: 048
     Dates: start: 19950101, end: 19951008
  2. PROZAC [Suspect]
     Indication: DISEASE RECURRENCE
     Dosage: 60 MGS. (3/95-10/95) ONCE DAILY ORAL 30 MGS. (1/95-3/95) ONCE DAILY ORAL
     Route: 048
     Dates: start: 19950101, end: 19951008

REACTIONS (12)
  - ABNORMAL BEHAVIOUR [None]
  - AGGRESSION [None]
  - ANGER [None]
  - DRUG INEFFECTIVE [None]
  - HOMICIDE [None]
  - INTENTIONAL SELF-INJURY [None]
  - MANIA [None]
  - PSYCHOTIC DISORDER [None]
  - SUICIDAL IDEATION [None]
  - SUICIDE ATTEMPT [None]
  - THINKING ABNORMAL [None]
  - TREMOR [None]
